FAERS Safety Report 8763153 (Version 4)
Quarter: 2013Q2

REPORT INFORMATION
  Report Type: Report from Study
  Country: JP (occurrence: JP)
  Receive Date: 20120831
  Receipt Date: 20130625
  Transmission Date: 20140414
  Serious: Yes (Hospitalization, Other)
  Sender: FDA-Public Use
  Company Number: JP-VERTEX PHARMACEUTICAL INC.-2012-020191

PATIENT
  Age: 66 Year
  Sex: Male

DRUGS (16)
  1. VX-950 (TELAPREVIR) [Suspect]
     Indication: CHRONIC HEPATITIS C
     Dosage: 2250 MG, QD
     Route: 048
     Dates: start: 20120612, end: 20120819
  2. REBETOL [Suspect]
     Indication: CHRONIC HEPATITIS C
     Dosage: 800 MG, QD
     Route: 048
     Dates: start: 20120612, end: 20120703
  3. REBETOL [Suspect]
     Dosage: 400 MG, QD
     Route: 048
     Dates: start: 20120703, end: 20120717
  4. REBETOL [Suspect]
     Dosage: 200 MG, QD
     Route: 048
     Dates: start: 20120717, end: 20120819
  5. REBETOL [Suspect]
     Dosage: UNK
     Route: 048
     Dates: start: 20120904
  6. PEGINTRON [Suspect]
     Indication: CHRONIC HEPATITIS C
     Dosage: 1.5 ?G/KG, QW
     Route: 058
     Dates: start: 20120612, end: 20120819
  7. PEGINTRON [Suspect]
     Dosage: UNK
     Route: 058
     Dates: start: 20120904
  8. DEPAS [Concomitant]
     Dosage: 1.0 MG, QD
     Route: 048
  9. RIZE [Concomitant]
     Dosage: 5 MG, QD
     Route: 048
  10. PARIET [Concomitant]
     Dosage: 10 MG, QD
     Route: 048
     Dates: end: 20120819
  11. CALBLOCK [Concomitant]
     Dosage: 8.0 MG, QD
     Route: 048
  12. MICARDIS [Concomitant]
     Dosage: 40 MG, QD
     Route: 048
  13. HUMALOG MIX [Concomitant]
     Dosage: 8 DF, QD
     Route: 058
  14. HUMALOG [Concomitant]
     Dosage: 14 DF, QD
     Route: 058
  15. EKSALB [Concomitant]
     Dosage: 5 G/ DAY, PRN
     Route: 051
     Dates: start: 20120626, end: 20120703
  16. URSO [Concomitant]
     Dosage: 600 MG, QD
     Route: 048
     Dates: end: 20120819

REACTIONS (2)
  - Delirium [Recovered/Resolved]
  - Drug eruption [Recovered/Resolved]
